FAERS Safety Report 6091130-X (Version None)
Quarter: 2009Q1

REPORT INFORMATION
  Report Type: 
  Country: None (occurrence: None)
  Receive Date: 20090219
  Receipt Date: 20090219
  Transmission Date: 20090719
  Serious: No
  Sender: FDA-Public Use
  Company Number: None

PATIENT
  Sex: Female
  Weight: 78.4723 kg

DRUGS (2)
  1. METOPROLOL SUCCINATE EXTENDED RELEASE [Suspect]
     Indication: BLOOD PRESSURE
     Dosage: ONE DAILY
     Dates: start: 20081226, end: 20090120
  2. METOPROLOL SUCCINATE EXTENDED RELEASE [Suspect]
     Indication: CARDIAC DISORDER
     Dosage: ONE DAILY
     Dates: start: 20081226, end: 20090120

REACTIONS (5)
  - COUGH [None]
  - DYSPNOEA [None]
  - PRODUCT QUALITY ISSUE [None]
  - PRURITUS GENERALISED [None]
  - RASH GENERALISED [None]
